FAERS Safety Report 5343852-3 (Version None)
Quarter: 2007Q2

REPORT INFORMATION
  Report Type: 
  Country: None (occurrence: None)
  Receive Date: 20070531
  Receipt Date: 20070515
  Transmission Date: 20071010
  Serious: Yes (Other)
  Sender: FDA-Public Use
  Company Number: PAR_01584_2007

PATIENT
  Sex: Female
  Weight: 98 kg

DRUGS (14)
  1. IBUPROFEN [Suspect]
     Indication: INFLAMMATION
     Dosage: 400 MG; TOTAL DAILY DOSE NOT REPORTED; ORAL
     Route: 048
     Dates: start: 20070113
  2. IBUPROFEN [Suspect]
     Indication: PAIN
     Dosage: 400 MG; TOTAL DAILY DOSE NOT REPORTED; ORAL
     Route: 048
     Dates: start: 20070113
  3. ALEVE (CAPLET) [Suspect]
     Indication: TOOTHACHE
     Dosage: 220 MG AT 18:14; TOTAL DAILY DOSE NOT REPORTED; ORAL
     Route: 048
     Dates: start: 20070113
  4. DHYPERICUM [Suspect]
     Indication: NEURALGIA
     Dosage: TOTAL DAILY DOSE NOT REPORTED; ORAL
     Route: 048
     Dates: start: 20070113
  5. ELMIRON [Concomitant]
  6. LESSINA [Concomitant]
  7. ESTER C [Concomitant]
  8. MULTIVITAMIN /00831701/ [Concomitant]
  9. MULTIMINERALS [Concomitant]
  10. CALCIUM CHLORIDE [Concomitant]
  11. LYSINE [Concomitant]
  12. ARNICA [Concomitant]
  13. FLUCONAZOLE [Concomitant]
  14. FLUCONAZOLE [Concomitant]

REACTIONS (13)
  - DIARRHOEA [None]
  - DRY MOUTH [None]
  - FATIGUE [None]
  - HEART RATE INCREASED [None]
  - MOVEMENT DISORDER [None]
  - MUSCULAR WEAKNESS [None]
  - NAUSEA [None]
  - PAIN [None]
  - PARAESTHESIA [None]
  - SKIN DISCOLOURATION [None]
  - SOMNOLENCE [None]
  - THIRST [None]
  - TREMOR [None]
